FAERS Safety Report 16153607 (Version 2)
Quarter: 2019Q2

REPORT INFORMATION
  Report Type: Spontaneous
  Country: DE (occurrence: DE)
  Receive Date: 20190403
  Receipt Date: 20190521
  Transmission Date: 20190711
  Serious: Yes (Hospitalization, Other)
  Sender: FDA-Public Use
  Company Number: DE-ACCORD-117416

PATIENT
  Sex: Female

DRUGS (10)
  1. METHOTREXATE. [Suspect]
     Active Substance: METHOTREXATE
     Indication: PRODUCT USED FOR UNKNOWN INDICATION
  2. VIGANTOL [COLECALCIFEROL] [Concomitant]
     Active Substance: CHOLECALCIFEROL
     Dosage: STRENGTH 1000 I.E. VITAMIN D3 , 1-0-0-0
  3. CLEXANE [Concomitant]
     Active Substance: ENOXAPARIN SODIUM
     Dosage: STRENGTH 4.000 I. E. (40 MG)/0,4 ML, 0-0-0-1
  4. L-THYROXIN 1 A PHARMA [Concomitant]
     Dosage: STRENGTH 75 - 1 A PHARMA, 1-0-0-0
  5. FOLSAN [Concomitant]
     Active Substance: FOLIC ACID
     Dosage: STRENGTH 5MG, 1-0-0-0 1 X / WEEK
  6. LANTUS [Concomitant]
     Active Substance: INSULIN GLARGINE
     Dosage: STRENGTH 100 UNITS/ML INJECTION SOLUTION IN A VIAL, 0-0-0-8
  7. FERRO-SANOL DUODENAL [Concomitant]
     Active Substance: FERROUS GLYCINE SULFATE
     Dosage: STRENGTH 100MG, 1-0-0-0
  8. DECORTIN-H [Concomitant]
     Active Substance: PREDNISOLONE
     Dosage: STRENGTH 1 MG , 2-0-0-0
  9. HUMALOG [Concomitant]
     Active Substance: INSULIN LISPRO
     Dosage: STRENGTH 100 UNITS / ML, 10-8-3-0
  10. OMEBETA [Concomitant]
     Dosage: STRENGTH 40 MG, 1-0-0-0

REACTIONS (6)
  - Mucosal inflammation [Unknown]
  - Pancytopenia [Unknown]
  - Accidental overdose [Unknown]
  - Toxicity to various agents [Unknown]
  - Inappropriate schedule of product administration [Unknown]
  - Product administration error [Unknown]
